FAERS Safety Report 7383322-4 (Version None)
Quarter: 2011Q1

REPORT INFORMATION
  Report Type: 
  Country: None (occurrence: None)
  Receive Date: 20110330
  Receipt Date: 20110323
  Transmission Date: 20110831
  Serious: Yes (Death, Hospitalization)
  Sender: FDA-Public Use
  Company Number: FR-SANOFI-AVENTIS-2011SA017705

PATIENT
  Age: 60 Year
  Sex: Female

DRUGS (6)
  1. TAXOTERE [Suspect]
     Dates: start: 20070101
  2. TRASTUZUMAB [Suspect]
     Dates: start: 20101014, end: 20110203
  3. TAXOTERE [Suspect]
     Dates: start: 20101014, end: 20110203
  4. DAFALGAN [Concomitant]
     Dates: end: 20110210
  5. LEXOMIL [Concomitant]
     Dates: end: 20110210
  6. TRASTUZUMAB [Suspect]
     Dates: end: 20080701

REACTIONS (6)
  - ACUTE INTERSTITIAL PNEUMONITIS [None]
  - PYREXIA [None]
  - PNEUMONIA [None]
  - DYSPNOEA [None]
  - ACUTE RESPIRATORY DISTRESS SYNDROME [None]
  - PNEUMOTHORAX [None]
